FAERS Safety Report 20579997 (Version 1)
Quarter: 2022Q1

REPORT INFORMATION
  Report Type: Other
  Country: AU (occurrence: None)
  Receive Date: 20220310
  Receipt Date: 20220310
  Transmission Date: 20220424
  Serious: Yes (Death)
  Sender: FDA-Public Use
  Company Number: AU-ROCHE-3045915

PATIENT
  Age: 70 Year
  Sex: Female

DRUGS (5)
  1. RITUXIMAB [Suspect]
     Active Substance: RITUXIMAB
     Indication: High-grade B-cell lymphoma
     Route: 065
  2. EVEROLIMUS [Suspect]
     Active Substance: EVEROLIMUS
     Indication: High-grade B-cell lymphoma
     Route: 065
  3. GEMCITABINE [Concomitant]
     Active Substance: GEMCITABINE
     Indication: High-grade B-cell lymphoma
  4. VINORELBINE [Concomitant]
     Active Substance: VINORELBINE TARTRATE
     Indication: High-grade B-cell lymphoma
  5. CISPLATIN [Concomitant]
     Active Substance: CISPLATIN
     Indication: High-grade B-cell lymphoma

REACTIONS (2)
  - Disease progression [Fatal]
  - Drug ineffective [Unknown]
